FAERS Safety Report 5139294-6 (Version None)
Quarter: 2006Q4

REPORT INFORMATION
  Report Type: 
  Country: None (occurrence: None)
  Receive Date: 20061024
  Receipt Date: 20061013
  Transmission Date: 20070319
  Serious: Yes (Death)
  Sender: FDA-Public Use
  Company Number: 2006US002283

PATIENT
  Age: 28 Year
  Sex: Female

DRUGS (4)
  1. PROGRAF [Suspect]
     Dosage: 6 MG, UID/QD
  2. SIROLIMUS (SIROLIMUS) [Suspect]
     Indication: GRAFT VERSUS HOST DISEASE
     Dosage: 0.1 MG, UID/QD
  3. VORICONAZOLE (VORICONAZOLE) [Suspect]
     Indication: SYSTEMIC CANDIDA
     Dosage: 400 MG
  4. CONTRAST MEDIA [Concomitant]

REACTIONS (1)
  - PNEUMONIA [None]
